FAERS Safety Report 13375721 (Version 1)
Quarter: 2017Q1

REPORT INFORMATION
  Report Type: Spontaneous
  Country: GB (occurrence: GB)
  Receive Date: 20170328
  Receipt Date: 20170328
  Transmission Date: 20170429
  Serious: Yes (Other)
  Sender: FDA-Public Use
  Company Number: GB-ACCORD-049416

PATIENT
  Age: 49 Year
  Sex: Female
  Weight: 76.2 kg

DRUGS (6)
  1. COENZYME Q10 [Suspect]
     Active Substance: UBIDECARENONE
     Indication: PRODUCT USED FOR UNKNOWN INDICATION
  2. BENDROFLUMETHIAZIDE [Concomitant]
     Active Substance: BENDROFLUMETHIAZIDE
  3. THYROXINE [Concomitant]
     Active Substance: LEVOTHYROXINE
  4. PRAVASTATIN. [Suspect]
     Active Substance: PRAVASTATIN
     Indication: BLOOD CHOLESTEROL INCREASED
     Route: 048
     Dates: start: 20170303, end: 20170304
  5. PERINDOPRIL [Concomitant]
     Active Substance: PERINDOPRIL
  6. CETIRIZINE [Concomitant]
     Active Substance: CETIRIZINE HYDROCHLORIDE

REACTIONS (8)
  - Allergic sinusitis [Recovering/Resolving]
  - Paraesthesia [Recovered/Resolved]
  - Myalgia [Recovering/Resolving]
  - Cold sweat [Recovered/Resolved]
  - Nightmare [Recovered/Resolved]
  - Diverticulitis [Recovered/Resolved with Sequelae]
  - Headache [Recovering/Resolving]
  - Nausea [Recovering/Resolving]

NARRATIVE: CASE EVENT DATE: 20170304
